FAERS Safety Report 24317866 (Version 1)
Quarter: 2024Q3

REPORT INFORMATION
  Report Type: Spontaneous
  Country: US (occurrence: US)
  Receive Date: 20240913
  Receipt Date: 20240913
  Transmission Date: 20241016
  Serious: No
  Sender: Karo Pharma
  Company Number: US-Karo Pharma-2161550

PATIENT
  Age: 30 Year
  Sex: Male

DRUGS (2)
  1. TERBINAFINE [Suspect]
     Active Substance: TERBINAFINE
     Indication: Onychomycosis
  2. ITRACONAZOLE [Concomitant]
     Active Substance: ITRACONAZOLE

REACTIONS (2)
  - Drug ineffective [Unknown]
  - Off label use [Unknown]
